FAERS Safety Report 20167319 (Version 1)
Quarter: 2021Q4

REPORT INFORMATION
  Report Type: Spontaneous
  Country: US (occurrence: None)
  Receive Date: 20211208
  Receipt Date: 20211208
  Transmission Date: 20220303
  Serious: No
  Sender: FDA-Public Use
  Company Number: None

PATIENT
  Sex: Male

DRUGS (1)
  1. SUNITINIB [Suspect]
     Active Substance: SUNITINIB
     Indication: Colon neoplasm
     Dosage: OTHER FREQUENCY : QD 28 OF 42 DAYS;?
     Route: 048

REACTIONS (2)
  - Cardiac disorder [None]
  - Ejection fraction decreased [None]
